FAERS Safety Report 19641763 (Version 1)
Quarter: 2021Q3

REPORT INFORMATION
  Report Type: Report from Study
  Country: FR (occurrence: FR)
  Receive Date: 20210731
  Receipt Date: 20210731
  Transmission Date: 20211014
  Serious: Yes (Other)
  Sender: FDA-Public Use
  Company Number: FR-AUROBINDO-AUR-APL-2021-032359

PATIENT
  Age: 5 Year
  Sex: Female

DRUGS (8)
  1. SUFENTANIL [Suspect]
     Active Substance: SUFENTANIL
     Indication: ANAESTHESIA
     Dosage: 0.2 MICROGRAM/KILOGRAM
     Route: 065
  2. KETAMINE [Suspect]
     Active Substance: KETAMINE
     Indication: ANAESTHESIA
     Dosage: 1 MILLIGRAM/KILOGRAM
     Route: 065
  3. BOSENTAN. [Suspect]
     Active Substance: BOSENTAN
     Indication: PULMONARY ARTERIAL HYPERTENSION
     Dosage: 64 MILLIGRAM, DAILY
     Route: 065
  4. SEVOFLURANE. [Suspect]
     Active Substance: SEVOFLURANE
     Indication: ANAESTHESIA
     Dosage: UNK
     Route: 065
  5. TREPROSTINIL. [Suspect]
     Active Substance: TREPROSTINIL
     Indication: PULMONARY ARTERIAL HYPERTENSION
     Dosage: 31 NANOGRAM PER KILOGRAM/MINUTE
     Route: 065
  6. SILDENAFIL. [Suspect]
     Active Substance: SILDENAFIL
     Indication: PULMONARY ARTERIAL HYPERTENSION
     Dosage: 60 MILLIGRAM, DAILY
     Route: 065
  7. MIDAZOLAM. [Suspect]
     Active Substance: MIDAZOLAM
     Indication: ANAESTHESIA
     Dosage: 0.1 MILLIGRAM/KILOGRAM, EVERY HOUR
     Route: 065
  8. SUFENTANIL [Suspect]
     Active Substance: SUFENTANIL
     Dosage: 0.2 MICROGRAM/KILOGRAM, EVERY HOUR
     Route: 065

REACTIONS (1)
  - Drug ineffective [Unknown]
